FAERS Safety Report 11423367 (Version 1)
Quarter: 2015Q3

REPORT INFORMATION
  Report Type: Spontaneous
  Country: US (occurrence: US)
  Receive Date: 20150827
  Receipt Date: 20150827
  Transmission Date: 20151125
  Serious: No
  Sender: FDA-Public Use
  Company Number: US-MYLANLABS-2015M1003808

PATIENT
  Age: 60 Year
  Sex: Female

DRUGS (2)
  1. CLONIDINE. [Concomitant]
     Active Substance: CLONIDINE
     Indication: BLOOD PRESSURE MEASUREMENT
     Dosage: UNK
  2. CLONIDINE TRANSDERMAL SYSTEM [Suspect]
     Active Substance: CLONIDINE
     Indication: HYPERTENSION
     Dosage: 0.3 MG, QD, CHANGED QW
     Route: 062
     Dates: start: 2014

REACTIONS (3)
  - Dry mouth [Not Recovered/Not Resolved]
  - Application site pruritus [Not Recovered/Not Resolved]
  - Application site erosion [Not Recovered/Not Resolved]

NARRATIVE: CASE EVENT DATE: 201501
